FAERS Safety Report 6264939-7 (Version None)
Quarter: 2009Q3

REPORT INFORMATION
  Report Type: 
  Country: None (occurrence: None)
  Receive Date: 20090709
  Receipt Date: 20090709
  Transmission Date: 20100115
  Serious: Yes (Life-Threatening, Disabling, Other)
  Sender: FDA-Public Use
  Company Number: None

PATIENT
  Age: 77 Year
  Sex: Female
  Weight: 99.7913 kg

DRUGS (3)
  1. METOPROLOL SUCCINATE [Suspect]
     Dates: start: 20070101, end: 20080101
  2. METOPROLOL SUCCINATE [Suspect]
     Dates: start: 20080101, end: 20090101
  3. TOPROL-XL [Concomitant]

REACTIONS (6)
  - ABDOMINAL PAIN UPPER [None]
  - CHEST DISCOMFORT [None]
  - CHEST PAIN [None]
  - DYSPNOEA [None]
  - HEADACHE [None]
  - NAUSEA [None]
